FAERS Safety Report 16445723 (Version 5)
Quarter: 2019Q4

REPORT INFORMATION
  Report Type: Spontaneous
  Country: US (occurrence: US)
  Receive Date: 20190618
  Receipt Date: 20191120
  Transmission Date: 20200122
  Serious: No
  Sender: FDA-Public Use
  Company Number: US-PFIZER INC-2019258996

PATIENT
  Age: 78 Year
  Sex: Female
  Weight: 52.61 kg

DRUGS (5)
  1. CYCLOBENZAPRINE. [Concomitant]
     Active Substance: CYCLOBENZAPRINE
     Dosage: 5 MG, THRICE DAILY
  2. TRAMADOL. [Concomitant]
     Active Substance: TRAMADOL
     Dosage: UNK (1 TO 4 TIMES DAILY)
  3. XELJANZ XR [Suspect]
     Active Substance: TOFACITINIB CITRATE
     Dosage: UNK
     Dates: start: 2019
  4. XELJANZ XR [Suspect]
     Active Substance: TOFACITINIB CITRATE
     Indication: BACK PAIN
     Dosage: 11 MG, ONCE DAILY
     Dates: start: 201906, end: 20190725
  5. METHYLPREDNISOLONE. [Concomitant]
     Active Substance: METHYLPREDNISOLONE
     Dosage: 4 MG, UNK

REACTIONS (8)
  - Arthralgia [Unknown]
  - Pain [Unknown]
  - Spinal stenosis [Unknown]
  - Off label use [Unknown]
  - Back pain [Recovering/Resolving]
  - Product use in unapproved indication [Unknown]
  - Groin pain [Unknown]
  - Pain in extremity [Unknown]

NARRATIVE: CASE EVENT DATE: 201906
